FAERS Safety Report 7520044-0 (Version None)
Quarter: 2011Q2

REPORT INFORMATION
  Report Type: 
  Country: None (occurrence: None)
  Receive Date: 20110602
  Receipt Date: 20110523
  Transmission Date: 20111010
  Serious: Yes (Hospitalization, Other)
  Sender: FDA-Public Use
  Company Number: US-BAXTER-2011BH015677

PATIENT
  Sex: Female

DRUGS (1)
  1. DIANEAL [Suspect]
     Indication: PERITONEAL DIALYSIS
     Route: 033

REACTIONS (5)
  - HYPOTENSION [None]
  - VOMITING [None]
  - GASTRIC ULCER [None]
  - ABDOMINAL PAIN UPPER [None]
  - ASTHENIA [None]
